FAERS Safety Report 4330545-4 (Version None)
Quarter: 2004Q2

REPORT INFORMATION
  Report Type: 
  Country: None (occurrence: None)
  Receive Date: 20040401
  Receipt Date: 20040401
  Transmission Date: 20050107
  Serious: Yes (Hospitalization)
  Sender: FDA-Public Use
  Company Number: None

PATIENT
  Age: 75 Year
  Sex: Female
  Weight: 103.4 kg

DRUGS (17)
  1. DIGOXIN [Suspect]
     Indication: CARDIAC FAILURE CONGESTIVE
     Dosage: 0.375MG, 0.375MG, ORAL
     Route: 048
  2. TEMAZEPAM [Concomitant]
  3. NITROGLYCERIN 0.4MG SL [Concomitant]
  4. WARFARIN NA [Concomitant]
  5. ROSIGLITAZONE MALEATE [Concomitant]
  6. BISACODYL EC [Concomitant]
  7. TAMOXIFEN CITRATE [Concomitant]
  8. ISOSORBIDE DINITRATE [Concomitant]
  9. SIMVASTATIN [Concomitant]
  10. GEMFIBROZIL [Concomitant]
  11. GLYBURIDE [Concomitant]
  12. ACETAMINOPHEN [Concomitant]
  13. MULTI-VITAMIN [Concomitant]
  14. CALCIUM CARBONATE [Concomitant]
  15. CARVEDILOL [Concomitant]
  16. LISINOPRIL [Concomitant]
  17. FUROSEMIDE [Concomitant]

REACTIONS (1)
  - BRADYCARDIA [None]
